FAERS Safety Report 7788473-8 (Version None)
Quarter: 2011Q3

REPORT INFORMATION
  Report Type: 
  Country: None (occurrence: None)
  Receive Date: 20110927
  Receipt Date: 20110629
  Transmission Date: 20111222
  Serious: Yes (Hospitalization)
  Sender: FDA-Public Use
  Company Number: 2009-195834-NL

PATIENT
  Age: 22 Year
  Sex: Female
  Weight: 63.5036 kg

DRUGS (3)
  1. PREDNISONE [Concomitant]
  2. NUVARING [Suspect]
     Indication: CONTRACEPTION
     Dosage: VAG
     Route: 067
     Dates: start: 20070201, end: 20070914
  3. DOXYCYCLINE [Concomitant]

REACTIONS (10)
  - PULMONARY EMBOLISM [None]
  - VON WILLEBRAND'S FACTOR ANTIGEN INCREASED [None]
  - CONDITION AGGRAVATED [None]
  - BRONCHITIS [None]
  - ASTHMA [None]
  - PALPITATIONS [None]
  - ARTHRALGIA [None]
  - GAIT DISTURBANCE [None]
  - INTERNATIONAL NORMALISED RATIO INCREASED [None]
  - CHEST PAIN [None]
